FAERS Safety Report 9693275 (Version 2)
Quarter: 2015Q4

REPORT INFORMATION
  Report Type: Report from Study
  Country: US (occurrence: US)
  Receive Date: 20131118
  Receipt Date: 20151021
  Transmission Date: 20160305
  Serious: Yes (Death)
  Sender: FDA-Public Use
  Company Number: US-ROCHE-1305178

PATIENT
  Age: 55 Year
  Sex: Male

DRUGS (11)
  1. LANTUS SOLOSTAR [Concomitant]
     Active Substance: INSULIN GLARGINE
     Dosage: 100 UNIT/ML
     Route: 058
  2. LIDOCAINE. [Concomitant]
     Active Substance: LIDOCAINE
     Route: 061
  3. NOVOLOG [Concomitant]
     Active Substance: INSULIN ASPART
     Dosage: 100 UNITS/ML
     Route: 058
  4. PROPARACAINE [Concomitant]
     Active Substance: PROPARACAINE
     Route: 061
  5. LUCENTIS [Suspect]
     Active Substance: RANIBIZUMAB
     Dosage: BOTH EYES, 08/NOV/2013
     Route: 031
  6. BETADINE [Concomitant]
     Active Substance: POVIDONE-IODINE
  7. HUMULIN NOS [Concomitant]
     Active Substance: INSULIN HUMAN
     Dosage: 100 UNIT/ML
     Route: 058
  8. POLYTRIM [Concomitant]
     Active Substance: POLYMYXIN B SULFATE\TRIMETHOPRIM SULFATE
  9. LUCENTIS [Suspect]
     Active Substance: RANIBIZUMAB
     Indication: DIABETIC RETINAL OEDEMA
     Dosage: 12/SEP/2013 (LEFT EYE), 13/SEP/2013 (RIGHT EYE)
     Route: 031
  10. METFORMIN HYDROCHLORIDE. [Concomitant]
     Active Substance: METFORMIN HYDROCHLORIDE
     Route: 048
  11. JANUVIA [Concomitant]
     Active Substance: SITAGLIPTIN PHOSPHATE
     Route: 048

REACTIONS (1)
  - Death [Fatal]

NARRATIVE: CASE EVENT DATE: 20131111
